FAERS Safety Report 17640841 (Version 3)
Quarter: 2020Q2

REPORT INFORMATION
  Report Type: Report from Study
  Country: US (occurrence: US)
  Receive Date: 20200407
  Receipt Date: 20200530
  Transmission Date: 20200713
  Serious: Yes (Hospitalization)
  Sender: FDA-Public Use
  Company Number: NVSC2020US090118

PATIENT
  Sex: Male

DRUGS (1)
  1. ENTRESTO [Suspect]
     Active Substance: SACUBITRIL\VALSARTAN
     Indication: CARDIAC FAILURE CONGESTIVE
     Dosage: 50 MG, UNKNOWN
     Route: 048
     Dates: start: 201806

REACTIONS (7)
  - Asthenia [Unknown]
  - Fluid retention [Unknown]
  - Product dose omission [Recovered/Resolved]
  - Bronchitis [Unknown]
  - Cough [Unknown]
  - Nodule [Unknown]
  - Cerebrovascular accident [Recovering/Resolving]

NARRATIVE: CASE EVENT DATE: 2019
